FAERS Safety Report 9630645 (Version 1)
Quarter: 2013Q4

REPORT INFORMATION
  Report Type: Spontaneous
  Country: US (occurrence: None)
  Receive Date: 20131016
  Receipt Date: 20131016
  Transmission Date: 20140711
  Serious: Yes (Other)
  Sender: FDA-Public Use
  Company Number: ADR-2013214182

PATIENT
  Age: 35 Year
  Sex: Male

DRUGS (4)
  1. SERTRALINE TABLETS, USP 100MG [Suspect]
     Indication: OBSESSIVE-COMPULSIVE DISORDER
     Route: 048
  2. LITHIUM TABLETS [Concomitant]
  3. CLOMIPRAMINE TABLETS [Concomitant]
  4. RESPERIDONE 2 MG [Concomitant]

REACTIONS (7)
  - Hallucination, auditory [None]
  - Ataxia [None]
  - Myoclonus [None]
  - Hyperhidrosis [None]
  - Blood pressure increased [None]
  - Tremor [None]
  - Serotonin syndrome [None]
